FAERS Safety Report 9227656 (Version 1)
Quarter: 2013Q2

REPORT INFORMATION
  Report Type: Spontaneous
  Country: US (occurrence: US)
  Receive Date: 20130412
  Receipt Date: 20130412
  Transmission Date: 20140414
  Serious: No
  Sender: FDA-Public Use
  Company Number: US-BAYER-2013-036681

PATIENT
  Age: 80 Year
  Sex: Male

DRUGS (6)
  1. LEVITRA [Suspect]
     Indication: ERECTILE DYSFUNCTION
     Dosage: 10 MG, UNK
     Route: 048
  2. NORVASC [Concomitant]
  3. BLOOD PRESSURE MEDICATION 20/25 [Concomitant]
  4. HYTRIN [Concomitant]
  5. PROSCAR [Concomitant]
  6. BABY ASPIRIN [Concomitant]

REACTIONS (1)
  - Drug ineffective [None]
